FAERS Safety Report 18598611 (Version 1)
Quarter: 2020Q4

REPORT INFORMATION
  Report Type: Report from Study
  Country: US (occurrence: US)
  Receive Date: 20201210
  Receipt Date: 20201210
  Transmission Date: 20210114
  Serious: Yes (Death, Other)
  Sender: FDA-Public Use
  Company Number: US-ROCHE-2685455

PATIENT
  Age: 57 Year
  Sex: Male

DRUGS (4)
  1. OBINUTUZUMAB. [Suspect]
     Active Substance: OBINUTUZUMAB
     Dosage: ON DAY 8-CYCLE 1, ON DAY 15-CYCLE 1, ON DAY 1, CYCLE 2-6
     Route: 042
  2. OBINUTUZUMAB. [Suspect]
     Active Substance: OBINUTUZUMAB
     Dosage: ON DAY 2, CYCLE 1
     Route: 042
     Dates: start: 20200812
  3. OBINUTUZUMAB. [Suspect]
     Active Substance: OBINUTUZUMAB
     Indication: CHRONIC LYMPHOCYTIC LEUKAEMIA
     Dosage: ON DAY 1, CYCLE 1?TOTAL DOSE ADMINISTERED THIS COURSE (DOSE): 2000 MG?DATE OF LAST DOSE PRIOR TO THE
     Route: 042
     Dates: start: 20200812
  4. IBRUTINIB [Suspect]
     Active Substance: IBRUTINIB
     Indication: CHRONIC LYMPHOCYTIC LEUKAEMIA
     Dosage: ON DAYS 1-28?TOTAL DOSE ADMINISTERED THIS COURSE (DOSE): 4200 MG?DATE OF LAST DOSE PRIOR TO THE ONSE
     Route: 048
     Dates: start: 20200812

REACTIONS (3)
  - Endocarditis [Fatal]
  - Haemorrhage intracranial [Fatal]
  - Anaemia [Recovered/Resolved]

NARRATIVE: CASE EVENT DATE: 20200812
